FAERS Safety Report 13857668 (Version 2)
Quarter: 2017Q3

REPORT INFORMATION
  Report Type: Spontaneous
  Country: DO (occurrence: DO)
  Receive Date: 20170811
  Receipt Date: 20170913
  Transmission Date: 20171127
  Serious: Yes (Death, Other)
  Sender: FDA-Public Use
  Company Number: DO-ROCHE-1975096

PATIENT
  Sex: Female

DRUGS (2)
  1. GAZYVA [Suspect]
     Active Substance: OBINUTUZUMAB
     Indication: LYMPHOMA
     Route: 065
  2. BENDAMUSTINE [Concomitant]
     Active Substance: BENDAMUSTINE
     Dosage: APPLY THE DAY 1 AND 2 IN THE FIRST?CYCLE.
     Route: 065

REACTIONS (4)
  - Renal failure [Unknown]
  - Sepsis [Fatal]
  - Bone marrow failure [Fatal]
  - Pancytopenia [Unknown]
